FAERS Safety Report 7081317-1 (Version None)
Quarter: 2010Q4

REPORT INFORMATION
  Report Type: 
  Country: None (occurrence: None)
  Receive Date: 20101103
  Receipt Date: 20101020
  Transmission Date: 20110411
  Serious: No
  Sender: FDA-Public Use
  Company Number: PHHY2010US67806

PATIENT
  Sex: Female
  Weight: 84.4 kg

DRUGS (3)
  1. ZOMETA [Suspect]
     Indication: BREAST CANCER METASTATIC
     Dosage: EVERY 28 DAYS
     Route: 042
     Dates: start: 20100222, end: 20100909
  2. XELODA [Concomitant]
     Indication: BREAST CANCER METASTATIC
     Dosage: 2 TABLET BID
     Route: 048
     Dates: start: 20100315
  3. COMPAZINE [Concomitant]
     Dosage: EVERY 8 HRS PRN
     Route: 048
     Dates: start: 20100222

REACTIONS (3)
  - ALOPECIA [None]
  - BONE DENSITY DECREASED [None]
  - JAW DISORDER [None]
